FAERS Safety Report 18967256 (Version 1)
Quarter: 2021Q1

REPORT INFORMATION
  Report Type: Report from Study
  Country: None (occurrence: CA)
  Receive Date: 20210304
  Receipt Date: 20210304
  Transmission Date: 20210420
  Serious: Yes (Hospitalization)
  Sender: FDA-Public Use
  Company Number: CA-ABBVIE-21K-028-3797719-00

PATIENT
  Age: 65 Year
  Sex: Male

DRUGS (1)
  1. HUMIRA [Suspect]
     Active Substance: ADALIMUMAB
     Indication: CROHN^S DISEASE
     Route: 058
     Dates: start: 20191218, end: 202007

REACTIONS (6)
  - Post procedural complication [Unknown]
  - Hypersensitivity [Not Recovered/Not Resolved]
  - Weight decreased [Not Recovered/Not Resolved]
  - Drug specific antibody present [Not Recovered/Not Resolved]
  - Colostomy closure [Recovered/Resolved]
  - Diarrhoea [Not Recovered/Not Resolved]

NARRATIVE: CASE EVENT DATE: 2020
